FAERS Safety Report 20073679 (Version 1)
Quarter: 2021Q4

REPORT INFORMATION
  Report Type: Spontaneous
  Country: US (occurrence: US)
  Receive Date: 20211116
  Receipt Date: 20211116
  Transmission Date: 20220303
  Serious: No
  Sender: FDA-Public Use
  Company Number: US-CADILA HEALTHCARE LIMITED-US-ZYDUS-067133

PATIENT

DRUGS (7)
  1. HYDROXYCHLOROQUINE SULFATE [Suspect]
     Active Substance: HYDROXYCHLOROQUINE SULFATE
     Indication: Rheumatoid arthritis
     Dosage: UNK, BID
     Route: 048
  2. ATORVASTATIN [Concomitant]
     Active Substance: ATORVASTATIN
     Indication: Hypercholesterolaemia
     Dosage: 40 MILLIGRAM
     Route: 048
  3. AMLODIPINE [Concomitant]
     Active Substance: AMLODIPINE BESYLATE
     Indication: Hypertension
     Dosage: 10 MILLIGRAM
     Route: 048
  4. VITAMIN D3 [Concomitant]
     Active Substance: CHOLECALCIFEROL
     Indication: Product used for unknown indication
     Dosage: UNK
  5. HERBALS\PLANTAGO OVATA SEED\PLANTAGO SEED [Concomitant]
     Active Substance: HERBALS\PLANTAGO OVATA SEED\PLANTAGO SEED
     Indication: Dyspepsia
     Dosage: UNK
  6. HERBALS\TURMERIC [Concomitant]
     Active Substance: HERBALS\TURMERIC
     Indication: Inflammation
     Dosage: UNK
  7. Illumya [Concomitant]
     Indication: Product used for unknown indication

REACTIONS (7)
  - Arthralgia [Unknown]
  - Pain in extremity [Not Recovered/Not Resolved]
  - Gait disturbance [Unknown]
  - Peripheral swelling [Not Recovered/Not Resolved]
  - Impaired quality of life [Unknown]
  - Drug ineffective [Not Recovered/Not Resolved]
  - Fatigue [Unknown]
